FAERS Safety Report 5111625-2 (Version None)
Quarter: 2006Q3

REPORT INFORMATION
  Report Type: 
  Country: None (occurrence: None)
  Receive Date: 20060922
  Receipt Date: 20060918
  Transmission Date: 20061208
  Serious: Yes (Hospitalization)
  Sender: FDA-Public Use
  Company Number: PHRM2006FR02592

PATIENT
  Age: 67 Year
  Sex: Male

DRUGS (3)
  1. ALEPSAL [Concomitant]
     Dosage: 1 DF, BID
     Route: 048
  2. ZYLORIC [Concomitant]
     Route: 048
  3. TEGRETOL [Suspect]
     Dosage: 400 MG, Q48H
     Route: 048

REACTIONS (9)
  - COLITIS [None]
  - DEHYDRATION [None]
  - DIARRHOEA [None]
  - HYPOKALAEMIA [None]
  - INTESTINAL VILLI ATROPHY [None]
  - MALABSORPTION [None]
  - PANCREATIC INSUFFICIENCY [None]
  - RENAL FAILURE [None]
  - VITAMIN K DEFICIENCY [None]
